FAERS Safety Report 17494687 (Version 2)
Quarter: 2020Q1

REPORT INFORMATION
  Report Type: Spontaneous
  Country: CZ (occurrence: CZ)
  Receive Date: 20200304
  Receipt Date: 20200325
  Transmission Date: 20200409
  Serious: Yes (Hospitalization, Other)
  Sender: FDA-Public Use
  Company Number: CZ-BRISTOL-MYERS SQUIBB COMPANY-BMS-2020-018215

PATIENT
  Sex: Male

DRUGS (2)
  1. IPILIMUMAB [Suspect]
     Active Substance: IPILIMUMAB
     Indication: MALIGNANT MELANOMA
     Dosage: UNK
     Route: 065
  2. NIVOLUMAB [Suspect]
     Active Substance: NIVOLUMAB
     Indication: MALIGNANT MELANOMA
     Dosage: 3 MILLIGRAM/KILOGRAM, Q2WK
     Route: 065
     Dates: start: 201901, end: 20190722

REACTIONS (9)
  - Vertigo [Unknown]
  - Malignant neoplasm progression [Unknown]
  - Infection [Unknown]
  - Mental disorder [Unknown]
  - Acute kidney injury [Unknown]
  - Dehydration [Unknown]
  - Autoimmune nephritis [Unknown]
  - Encephalitis autoimmune [Unknown]
  - Off label use [Unknown]

NARRATIVE: CASE EVENT DATE: 20190703
